FAERS Safety Report 23833549 (Version 2)
Quarter: 2024Q2

REPORT INFORMATION
  Report Type: Spontaneous
  Country: JP (occurrence: JP)
  Receive Date: 20240508
  Receipt Date: 20240527
  Transmission Date: 20240716
  Serious: Yes (Other)
  Sender: FDA-Public Use
  Company Number: JP-DSJP-DSJ-2024-118552

PATIENT
  Age: 75 Year
  Sex: Female

DRUGS (3)
  1. DENOSUMAB [Suspect]
     Active Substance: DENOSUMAB
     Indication: Osteoarthritis
     Dosage: 60 MILLIGRAM, Q6MO (PREVIOUS ADMINISTRATION ON 11-APR)
     Route: 058
  2. DENOSUMAB [Suspect]
     Active Substance: DENOSUMAB
     Indication: Osteoporosis
     Dosage: UNK
     Route: 065
  3. DENOSUMAB [Suspect]
     Active Substance: DENOSUMAB
     Indication: Femur fracture
     Dosage: UNK
     Route: 065

REACTIONS (2)
  - Metastases to bone [Unknown]
  - Off label use [Unknown]
